FAERS Safety Report 16834231 (Version 1)
Quarter: 2019Q3

REPORT INFORMATION
  Report Type: Spontaneous
  Country: PT (occurrence: PT)
  Receive Date: 20190920
  Receipt Date: 20190920
  Transmission Date: 20191005
  Serious: Yes (Death, Hospitalization)
  Sender: FDA-Public Use
  Company Number: PT-BAUSCH-BL-2019-025744

PATIENT
  Age: 49 Year
  Sex: Female

DRUGS (4)
  1. DEXAMETHASONE. [Suspect]
     Active Substance: DEXAMETHASONE
     Indication: ACUTE LYMPHOCYTIC LEUKAEMIA
     Dosage: HIGH DOSE
     Route: 065
     Dates: start: 201706
  2. CYCLOPHOSPHAMIDE. [Suspect]
     Active Substance: CYCLOPHOSPHAMIDE
     Indication: ACUTE LYMPHOCYTIC LEUKAEMIA
     Dosage: HIGH DOSE
     Route: 065
     Dates: start: 201706
  3. VINCRISTINE [Suspect]
     Active Substance: VINCRISTINE
     Indication: ACUTE LYMPHOCYTIC LEUKAEMIA
     Dosage: HIGH DOSE
     Route: 065
     Dates: start: 201706
  4. DOXORUBICIN [Suspect]
     Active Substance: DOXORUBICIN
     Indication: ACUTE LYMPHOCYTIC LEUKAEMIA
     Dosage: HIGH DOSE
     Route: 065
     Dates: start: 201706

REACTIONS (1)
  - Osteomyelitis bacterial [Fatal]

NARRATIVE: CASE EVENT DATE: 201706
